FAERS Safety Report 20430513 (Version 1)
Quarter: 2022Q1

REPORT INFORMATION
  Report Type: Report from Study
  Country: FR (occurrence: FR)
  Receive Date: 20220204
  Receipt Date: 20220204
  Transmission Date: 20220423
  Serious: Yes (Hospitalization)
  Sender: FDA-Public Use
  Company Number: FR-SERVIER-S20009896

PATIENT

DRUGS (8)
  1. ONCASPAR [Suspect]
     Active Substance: PEGASPARGASE
     Indication: Acute lymphocytic leukaemia
     Dosage: 3025 IU, QD, D15, D43
     Route: 042
     Dates: start: 20200427, end: 20200608
  2. TN UNSPECIFIED [Concomitant]
     Indication: Acute lymphocytic leukaemia
     Dosage: 1200 MG, D29
     Route: 042
     Dates: start: 20200522, end: 20200522
  3. TN UNSPECIFIED [Concomitant]
     Indication: Acute lymphocytic leukaemia
     Dosage: 70 MG, D34, D43
     Route: 048
     Dates: start: 20200528, end: 20200606
  4. TN UNSPECIFIED [Concomitant]
     Indication: Acute lymphocytic leukaemia
     Dosage: 1.8 MG, D43, D50
     Route: 042
     Dates: start: 20200608, end: 20200615
  5. TN UNSPECIFIED [Concomitant]
     Indication: Acute lymphocytic leukaemia
     Dosage: 88 MG, D31-D34, D38-D41
     Route: 042
     Dates: start: 20200525, end: 20200605
  6. TN UNSPECIFIED [Concomitant]
     Dosage: 30 MG, D31
     Route: 037
     Dates: start: 20200525, end: 20200525
  7. TN UNSPECIFIED [Concomitant]
     Indication: Acute lymphocytic leukaemia
     Dosage: 15 MG, D31
     Route: 037
     Dates: start: 20200525, end: 20200525
  8. TN UNSPECIFIED [Concomitant]
     Indication: Acute lymphocytic leukaemia
     Dosage: 15 MG, D31
     Route: 037
     Dates: start: 20200525, end: 20200525

REACTIONS (5)
  - Febrile bone marrow aplasia [Recovered/Resolved]
  - Klebsiella infection [Recovered/Resolved]
  - Bacterial pyelonephritis [Recovered/Resolved]
  - Febrile bone marrow aplasia [Recovered/Resolved]
  - Staphylococcal bacteraemia [Recovered/Resolved]

NARRATIVE: CASE EVENT DATE: 20200509
